FAERS Safety Report 25036978 (Version 3)
Quarter: 2025Q1

REPORT INFORMATION
  Report Type: Report from Study
  Country: BR (occurrence: BR)
  Receive Date: 20250304
  Receipt Date: 20250312
  Transmission Date: 20250408
  Serious: Yes (Other)
  Sender: PFIZER
  Company Number: BR-PFIZER INC-PV202300202995

PATIENT
  Age: 67 Year
  Sex: Male
  Weight: 55 kg

DRUGS (3)
  1. INFLIXIMAB [Suspect]
     Active Substance: INFLIXIMAB
     Indication: Ankylosing spondylitis
     Route: 042
     Dates: start: 20220921
  2. INFLIXIMAB [Suspect]
     Active Substance: INFLIXIMAB
     Indication: Ankylosing spondylitis
     Route: 065
     Dates: end: 202502
  3. PREDNISOLONE [Concomitant]
     Active Substance: PREDNISOLONE
     Route: 065

REACTIONS (10)
  - Retinal artery occlusion [Recovering/Resolving]
  - Conjunctival haemorrhage [Recovering/Resolving]
  - Muscle atrophy [Recovering/Resolving]
  - Ankylosing spondylitis [Recovering/Resolving]
  - Weight gain poor [Recovering/Resolving]
  - Blood cholesterol increased [Recovering/Resolving]
  - Hypertension [Recovering/Resolving]
  - Dry skin [Recovering/Resolving]
  - Therapeutic response shortened [Recovering/Resolving]
  - Neck pain [Recovering/Resolving]

NARRATIVE: CASE EVENT DATE: 20230101
